FAERS Safety Report 23506530 (Version 1)
Quarter: 2024Q1

REPORT INFORMATION
  Report Type: Spontaneous
  Country: US (occurrence: US)
  Receive Date: 20240209
  Receipt Date: 20240209
  Transmission Date: 20240410
  Serious: No
  Sender: FDA-Public Use
  Company Number: US-IBSA PHARMA INC.-2023IBS000123

PATIENT

DRUGS (1)
  1. TIROSINT-SOL [Suspect]
     Active Substance: LEVOTHYROXINE SODIUM
     Indication: Hypothyroidism
     Dosage: 175 MICROGRAM, QD
     Route: 048
     Dates: start: 20230113, end: 20230209

REACTIONS (4)
  - Asthenia [Recovering/Resolving]
  - Drug ineffective [Unknown]
  - Blood thyroid stimulating hormone increased [Recovering/Resolving]
  - Thyroxine free abnormal [Recovering/Resolving]

NARRATIVE: CASE EVENT DATE: 20230101
